FAERS Safety Report 4456319-1 (Version None)
Quarter: 2004Q3

REPORT INFORMATION
  Report Type: 
  Country: None (occurrence: None)
  Receive Date: 20040917
  Receipt Date: 20040826
  Transmission Date: 20050211
  Serious: Yes (Death)
  Sender: FDA-Public Use
  Company Number: USA040876592

PATIENT
  Age: 80 Month
  Sex: Male

DRUGS (1)
  1. GEMZAR [Suspect]
     Indication: ADENOCARCINOMA PANCREAS
     Dates: start: 20030101, end: 20040101

REACTIONS (3)
  - LUNG DISORDER [None]
  - PERFORMANCE STATUS DECREASED [None]
  - RESPIRATORY DISORDER [None]
